FAERS Safety Report 4483767-6 (Version None)
Quarter: 2004Q4

REPORT INFORMATION
  Report Type: 
  Country: None (occurrence: None)
  Receive Date: 20041021
  Receipt Date: 20041007
  Transmission Date: 20050328
  Serious: No
  Sender: FDA-Public Use
  Company Number: 04-000680

PATIENT
  Sex: Female

DRUGS (1)
  1. OVCON-50 [Suspect]
     Dosage: 50/1000 UG, ORAL
     Route: 048

REACTIONS (1)
  - NO ADVERSE DRUG EFFECT [None]
